FAERS Safety Report 17491510 (Version 1)
Quarter: 2020Q1

REPORT INFORMATION
  Report Type: Spontaneous
  Country: FR (occurrence: FR)
  Receive Date: 20200303
  Receipt Date: 20200303
  Transmission Date: 20200409
  Serious: Yes (Other)
  Sender: FDA-Public Use
  Company Number: FR-MYLANLABS-2020M1022743

PATIENT
  Sex: Female

DRUGS (2)
  1. EXACYL [Concomitant]
     Active Substance: TRANEXAMIC ACID
     Dosage: UNK
  2. NORADRENALINE MYLAN [Suspect]
     Active Substance: NOREPINEPHRINE\NOREPINEPHRINE BITARTRATE
     Indication: PRODUCT USED FOR UNKNOWN INDICATION
     Dosage: INCONNUE
     Route: 042
     Dates: start: 20191222, end: 20191222

REACTIONS (4)
  - Physical product label issue [Recovered/Resolved]
  - Blood pressure increased [Recovered/Resolved]
  - Wrong drug [Recovered/Resolved]
  - Product administration error [Recovered/Resolved]

NARRATIVE: CASE EVENT DATE: 20191222
